FAERS Safety Report 20364516 (Version 1)
Quarter: 2022Q1

REPORT INFORMATION
  Report Type: Spontaneous
  Country: IN (occurrence: IN)
  Receive Date: 20220122
  Receipt Date: 20220122
  Transmission Date: 20220424
  Serious: Yes (Other)
  Sender: FDA-Public Use
  Company Number: IN-EPICPHARMA-IN-2022EPCLIT00063

PATIENT

DRUGS (3)
  1. ISONIAZID [Suspect]
     Active Substance: ISONIAZID
     Indication: Tuberculoma of central nervous system
     Route: 065
  2. DEXAMETHASONE [Concomitant]
     Active Substance: DEXAMETHASONE
     Indication: Tuberculoma of central nervous system
     Route: 048
  3. LEVETIRACETAM [Concomitant]
     Active Substance: LEVETIRACETAM
     Indication: Tuberculoma of central nervous system
     Route: 065

REACTIONS (3)
  - Autonomic neuropathy [Recovering/Resolving]
  - Hyperhidrosis [Recovering/Resolving]
  - Vitamin B6 deficiency [Recovering/Resolving]
